FAERS Safety Report 16184630 (Version 2)
Quarter: 2019Q3

REPORT INFORMATION
  Report Type: Spontaneous
  Country: US (occurrence: US)
  Receive Date: 20190411
  Receipt Date: 20190701
  Transmission Date: 20191004
  Serious: Yes (Other)
  Sender: FDA-Public Use
  Company Number: US-COOPERSURGICAL, INC.-US-2019CPS000941

PATIENT
  Age: 24 Year
  Sex: Female
  Weight: 97.52 kg

DRUGS (1)
  1. PARAGARD T 380A [Suspect]
     Active Substance: COPPER
     Indication: CONTRACEPTION
     Dosage: UNK
     Route: 015
     Dates: start: 20180607, end: 20190321

REACTIONS (4)
  - Abdominal pain upper [Recovered/Resolved]
  - Helicobacter test positive [Recovered/Resolved]
  - Diarrhoea haemorrhagic [Recovered/Resolved]
  - Device expulsion [Recovered/Resolved]

NARRATIVE: CASE EVENT DATE: 201808
